FAERS Safety Report 4450512-X (Version None)
Quarter: 2004Q3

REPORT INFORMATION
  Report Type: 
  Country: None (occurrence: None)
  Receive Date: 20040914
  Receipt Date: 20040831
  Transmission Date: 20050211
  Serious: Yes (Hospitalization, Other)
  Sender: FDA-Public Use
  Company Number: 2004061440

PATIENT
  Sex: Female
  Weight: 63.05 kg

DRUGS (11)
  1. NEURONTIN [Suspect]
     Indication: NEURALGIA
     Dosage: 1800 MG (600 MG, 3 IN 1 D), ORAL
     Route: 048
  2. TIAGABINE HYDROCHLORIDE (TIAGABINE HYDROCHLORIDE) [Concomitant]
  3. CYCLOBENZAPRINE HCL [Concomitant]
  4. CONJUGATED ESTROGENS [Concomitant]
  5. ZOLPIDEM TARTRATE [Concomitant]
  6. PAROXETINE HCL [Concomitant]
  7. TIZANIDINE (TIZANIDINE) [Concomitant]
  8. ALL OTHER THERAPEUTIC PRODUCTS (ALL OTHER THERAPEUTICS PRODUCTS) [Concomitant]
  9. SERETIDE MITE (FLUTICASONE PROPIONATE, SALMUTEROL XINAFOATE) [Concomitant]
  10. SALBUTAMOL (SALBUTAMOL) [Concomitant]
  11. EPINEPHRINE [Concomitant]

REACTIONS (14)
  - BACK PAIN [None]
  - BONE NEOPLASM [None]
  - BURNING SENSATION [None]
  - COMA [None]
  - CYST [None]
  - HALLUCINATION [None]
  - HEPATIC FUNCTION ABNORMAL [None]
  - METABOLIC DISORDER [None]
  - NERVE ROOT LESION [None]
  - NEURALGIA [None]
  - NIGHT SWEATS [None]
  - PAIN IN EXTREMITY [None]
  - SPINAL DISORDER [None]
  - SUICIDAL IDEATION [None]
